FAERS Safety Report 20238760 (Version 1)
Quarter: 2021Q4

REPORT INFORMATION
  Report Type: Spontaneous
  Country: US (occurrence: None)
  Receive Date: 20211227
  Receipt Date: 20211227
  Transmission Date: 20220303
  Serious: Yes (Life-Threatening)
  Sender: FDA-Public Use
  Company Number: None

PATIENT
  Age: 70 Year
  Sex: Male
  Weight: 102 kg

DRUGS (1)
  1. BARICITINIB [Suspect]
     Active Substance: BARICITINIB
     Indication: COVID-19
     Dosage: FREQUENCY : DAILY;?
     Route: 048
     Dates: start: 20211103, end: 20211106

REACTIONS (6)
  - Infection [None]
  - Sepsis [None]
  - Acute respiratory failure [None]
  - Abdominal compartment syndrome [None]
  - Acute kidney injury [None]
  - Ileus [None]

NARRATIVE: CASE EVENT DATE: 20211106
